FAERS Safety Report 17572555 (Version 1)
Quarter: 2020Q1

REPORT INFORMATION
  Report Type: Spontaneous
  Country: US (occurrence: US)
  Receive Date: 20200323
  Receipt Date: 20200323
  Transmission Date: 20200409
  Serious: No
  Sender: FDA-Public Use
  Company Number: US-SHIRE-US202010741

PATIENT
  Sex: Female

DRUGS (4)
  1. HYQVIA [Suspect]
     Active Substance: HUMAN IMMUNOGLOBULIN G\HYALURONIDASE RECOMBINANT HUMAN
     Dosage: 15 GRAM
     Route: 058
     Dates: start: 20200306
  2. HYQVIA [Suspect]
     Active Substance: HUMAN IMMUNOGLOBULIN G\HYALURONIDASE RECOMBINANT HUMAN
     Dosage: 15 GRAM
     Route: 058
     Dates: start: 20200306
  3. HYQVIA [Suspect]
     Active Substance: HUMAN IMMUNOGLOBULIN G\HYALURONIDASE RECOMBINANT HUMAN
     Indication: IMMUNODEFICIENCY COMMON VARIABLE
     Dosage: 7.5 GRAM
     Route: 058
     Dates: start: 20200228
  4. HYQVIA [Suspect]
     Active Substance: HUMAN IMMUNOGLOBULIN G\HYALURONIDASE RECOMBINANT HUMAN
     Dosage: 7.5 GRAM
     Route: 058
     Dates: start: 20200228

REACTIONS (7)
  - Injection site erythema [Recovering/Resolving]
  - Skin disorder [Unknown]
  - Injection site swelling [Recovering/Resolving]
  - Injection site pain [Unknown]
  - Injection site extravasation [Unknown]
  - Rash [Unknown]
  - Weight decreased [Unknown]
